FAERS Safety Report 7339698-7 (Version None)
Quarter: 2011Q1

REPORT INFORMATION
  Report Type: 
  Country: None (occurrence: None)
  Receive Date: 20110304
  Receipt Date: 20110304
  Transmission Date: 20110831
  Serious: No
  Sender: FDA-Public Use
  Company Number: None

PATIENT
  Sex: Female

DRUGS (1)
  1. CLEOCIN [Suspect]
     Dosage: 100 MG SUPPOSITORY ONCE AT BEDTIME VAGINAL
     Route: 067
     Dates: start: 20110217, end: 20110218

REACTIONS (1)
  - VULVOVAGINAL PAIN [None]
